FAERS Safety Report 7620720-5 (Version None)
Quarter: 2011Q3

REPORT INFORMATION
  Report Type: 
  Country: None (occurrence: None)
  Receive Date: 20110719
  Receipt Date: 20110310
  Transmission Date: 20111222
  Serious: Yes (Other)
  Sender: FDA-Public Use
  Company Number: GR-GLAXOSMITHKLINE-B0706480A

PATIENT
  Age: 37 Year
  Sex: Female

DRUGS (1)
  1. PAROXETINE HCL [Suspect]
     Indication: PANIC ATTACK
     Route: 065
     Dates: start: 20060101, end: 20110308

REACTIONS (3)
  - MATERNAL EXPOSURE DURING PREGNANCY [None]
  - AMNIOTIC CAVITY DISORDER [None]
  - ABORTION SPONTANEOUS [None]
